FAERS Safety Report 6545773-7 (Version None)
Quarter: 2010Q1

REPORT INFORMATION
  Report Type: 
  Country: None (occurrence: None)
  Receive Date: 20100114
  Receipt Date: 20090923
  Transmission Date: 20100710
  Serious: No
  Sender: FDA-Public Use
  Company Number: 2009BM000239

PATIENT
  Age: 26 Year
  Sex: Female
  Weight: 104.3273 kg

DRUGS (4)
  1. KUVAN [Suspect]
     Indication: PHENYLKETONURIA
     Dosage: 2000 MG;QD;PO
     Route: 048
     Dates: start: 20081001
  2. LEXAPRO [Concomitant]
  3. GLUCOPHAGE [Concomitant]
  4. LEVONORGESTREL WITH ETHINYL ESTRADIOL [Concomitant]

REACTIONS (2)
  - NAUSEA [None]
  - VOMITING [None]
